FAERS Safety Report 5303074-9 (Version None)
Quarter: 2007Q2

REPORT INFORMATION
  Report Type: 
  Country: None (occurrence: None)
  Receive Date: 20070420
  Receipt Date: 20070411
  Transmission Date: 20071010
  Serious: Yes (Hospitalization)
  Sender: FDA-Public Use
  Company Number: NO-BRISTOL-MYERS SQUIBB COMPANY-13752274

PATIENT
  Age: 60 Year
  Sex: Male

DRUGS (10)
  1. PRINIVIL [Suspect]
     Indication: HYPERTENSION
     Route: 048
  2. FUROSEMIDE [Suspect]
     Indication: HYPERTENSION
     Route: 048
  3. METOPROLOL TARTRATE [Suspect]
     Indication: HYPERTENSION
     Route: 048
  4. ALDOMET [Suspect]
     Indication: HYPERTENSION
     Route: 048
  5. CARVEDILOL [Suspect]
     Indication: HYPERTENSION
     Route: 048
  6. MOXONIDINE [Suspect]
     Indication: HYPERTENSION
     Route: 048
  7. AMLODIPINE BESYLATE [Suspect]
     Indication: HYPERTENSION
     Route: 048
  8. COZAAR [Suspect]
     Indication: HYPERTENSION
     Route: 048
  9. LERCANIDIPINE [Suspect]
     Indication: HYPERTENSION
     Route: 048
  10. BISOPROLOL FUMARATE [Suspect]
     Indication: HYPERTENSION
     Route: 048

REACTIONS (2)
  - COLITIS ULCERATIVE [None]
  - HEADACHE [None]
